FAERS Safety Report 11410087 (Version 1)
Quarter: 2015Q3

REPORT INFORMATION
  Report Type: Spontaneous
  Country: US (occurrence: US)
  Receive Date: 20150824
  Receipt Date: 20150824
  Transmission Date: 20151125
  Serious: Yes (Hospitalization, Other)
  Sender: FDA-Public Use
  Company Number: US-TEVA-587795USA

PATIENT
  Age: 1 Year
  Sex: Female

DRUGS (1)
  1. PROPRANOLOL [Suspect]
     Active Substance: PROPRANOLOL\PROPRANOLOL HYDROCHLORIDE
     Indication: LONG QT SYNDROME
     Dosage: 3.0 MG/KG/DAY
     Route: 065

REACTIONS (3)
  - Seizure [Recovered/Resolved]
  - Ketoacidosis [Recovered/Resolved]
  - Hypoglycaemia [Recovered/Resolved]
